FAERS Safety Report 15918703 (Version 1)
Quarter: 2019Q1

REPORT INFORMATION
  Report Type: Spontaneous
  Country: FR (occurrence: FR)
  Receive Date: 20190205
  Receipt Date: 20190205
  Transmission Date: 20190417
  Serious: Yes (Hospitalization)
  Sender: FDA-Public Use
  Company Number: FR-MYLANLABS-2019M1009175

PATIENT
  Age: 87 Year
  Sex: Female

DRUGS (6)
  1. NIFUROXAZIDE [Concomitant]
     Active Substance: NIFUROXAZIDE
     Dosage: 800 MILLIGRAM
     Route: 048
     Dates: start: 20180420
  2. PARKINANE [Concomitant]
     Active Substance: TRIHEXYPHENIDYL HYDROCHLORIDE
     Dosage: INCONNUE
     Route: 048
     Dates: start: 20180323, end: 20180424
  3. OLANZAPINE. [Suspect]
     Active Substance: OLANZAPINE
     Indication: PRODUCT USED FOR UNKNOWN INDICATION
     Dosage: 1 PAR JOUR PUIS 1 JOUR SUR 2
     Route: 048
     Dates: start: 20180424
  4. LOPERAMIDE [Concomitant]
     Active Substance: LOPERAMIDE
     Dosage: 2 MILLIGRAM
     Route: 048
     Dates: start: 20180420
  5. KARDEGIC [Concomitant]
     Active Substance: ASPIRIN DL-LYSINE
     Dosage: INCONNUE
     Route: 048
  6. ALDACTAZINE [Suspect]
     Active Substance: ALTHIAZIDE\SPIRONOLACTONE
     Indication: HYPERTENSION
     Dosage: 0.5 DOSAGE FORM
     Route: 048
     Dates: start: 20180416, end: 20180420

REACTIONS (1)
  - Hyponatraemia [Recovering/Resolving]

NARRATIVE: CASE EVENT DATE: 20180426
